FAERS Safety Report 4666073-6 (Version None)
Quarter: 2005Q2

REPORT INFORMATION
  Report Type: 
  Country: None (occurrence: None)
  Receive Date: 20050519
  Receipt Date: 20050505
  Transmission Date: 20051028
  Serious: Yes (Hospitalization)
  Sender: FDA-Public Use
  Company Number: CA-GLAXOSMITHKLINE-A0557436A

PATIENT
  Age: 53 Year
  Sex: Male
  Weight: 75.9 kg

DRUGS (4)
  1. AVANDIA [Suspect]
     Dosage: 4MG PER DAY
     Route: 048
     Dates: start: 20001201, end: 20040101
  2. LISINOPRIL [Concomitant]
     Indication: HYPERTENSION
     Dosage: 20MG UNKNOWN
     Route: 065
  3. ZOCOR [Concomitant]
     Indication: BLOOD CHOLESTEROL INCREASED
     Route: 065
  4. ISOPTIN SR [Concomitant]
     Indication: HYPERTENSION
     Dosage: 240U PER DAY
     Route: 065

REACTIONS (5)
  - BLOOD PRESSURE INCREASED [None]
  - CEREBROVASCULAR ACCIDENT [None]
  - DYSARTHRIA [None]
  - FACIAL PALSY [None]
  - SPEECH DISORDER [None]
